FAERS Safety Report 10923517 (Version 2)
Quarter: 2015Q2

REPORT INFORMATION
  Report Type: Spontaneous
  Country: US (occurrence: US)
  Receive Date: 20150318
  Receipt Date: 20150526
  Transmission Date: 20150821
  Serious: No
  Sender: FDA-Public Use
  Company Number: US-JNJFOC-20140200904

PATIENT
  Age: 7 Year
  Sex: Male
  Weight: 49.9 kg

DRUGS (2)
  1. TENEX [Concomitant]
     Active Substance: GUANFACINE HYDROCHLORIDE
     Indication: AGITATION
     Route: 065
     Dates: start: 20120229, end: 20120404
  2. HALDOL [Suspect]
     Active Substance: HALOPERIDOL
     Indication: PRODUCT USED FOR UNKNOWN INDICATION
     Route: 048
     Dates: start: 20120330, end: 20120405

REACTIONS (1)
  - Heart rate increased [Recovered/Resolved]

NARRATIVE: CASE EVENT DATE: 20120331
